FAERS Safety Report 16398646 (Version 1)
Quarter: 2019Q2

REPORT INFORMATION
  Report Type: Spontaneous
  Country: US (occurrence: US)
  Receive Date: 20190605
  Receipt Date: 20190605
  Transmission Date: 20190711
  Serious: No
  Sender: FDA-Public Use
  Company Number: None

PATIENT
  Age: 39 Year
  Sex: Male
  Weight: 117 kg

DRUGS (1)
  1. ANDROGEL [Suspect]
     Active Substance: TESTOSTERONE
     Indication: SECONDARY HYPOGONADISM
     Dosage: ?          QUANTITY:4 PUMP;?
     Route: 061
     Dates: start: 20190401, end: 20190603

REACTIONS (2)
  - Application site rash [None]
  - Application site pruritus [None]

NARRATIVE: CASE EVENT DATE: 20190603
